FAERS Safety Report 6175265-9 (Version None)
Quarter: 2009Q2

REPORT INFORMATION
  Report Type: 
  Country: None (occurrence: None)
  Receive Date: 20090430
  Receipt Date: 20090203
  Transmission Date: 20091009
  Serious: No
  Sender: FDA-Public Use
  Company Number: US-ASTRAZENECA-2009UW03243

PATIENT
  Sex: Female

DRUGS (3)
  1. NEXIUM [Suspect]
     Indication: GASTROOESOPHAGEAL REFLUX DISEASE
     Route: 048
     Dates: start: 20030101
  2. ATARAX [Concomitant]
  3. PRILOSEC [Concomitant]

REACTIONS (3)
  - EYE OEDEMA [None]
  - OEDEMA MOUTH [None]
  - PRURITUS [None]
